FAERS Safety Report 14206820 (Version 1)
Quarter: 2017Q4

REPORT INFORMATION
  Report Type: Spontaneous
  Country: US (occurrence: US)
  Receive Date: 20171121
  Receipt Date: 20171121
  Transmission Date: 20180321
  Serious: Yes (Hospitalization)
  Sender: FDA-Public Use
  Company Number: US-APOTEX-2017AP021249

PATIENT
  Age: 18 Year
  Sex: Female

DRUGS (1)
  1. ACYCLOVIR. [Suspect]
     Active Substance: ACYCLOVIR
     Indication: EVIDENCE BASED TREATMENT
     Route: 065

REACTIONS (2)
  - Drug ineffective [Unknown]
  - Exposure during pregnancy [Unknown]
